FAERS Safety Report 10470997 (Version 3)
Quarter: 2014Q4

REPORT INFORMATION
  Report Type: Spontaneous
  Country: US (occurrence: US)
  Receive Date: 20140923
  Receipt Date: 20141030
  Transmission Date: 20150528
  Serious: Yes (Death, Life-Threatening, Hospitalization, Other)
  Sender: FDA-Public Use
  Company Number: US-MERCK-1409USA010619

PATIENT
  Sex: Female
  Weight: 74.83 kg

DRUGS (1)
  1. JANUVIA [Suspect]
     Active Substance: SITAGLIPTIN PHOSPHATE
     Indication: TYPE 2 DIABETES MELLITUS
     Dosage: 100 MG, QD
     Route: 048
     Dates: start: 20090131, end: 20100602

REACTIONS (33)
  - Gastrooesophageal reflux disease [Unknown]
  - Hysterectomy [Unknown]
  - Diabetic gastroparesis [Unknown]
  - Confusional state [Unknown]
  - Hepatic steatosis [Unknown]
  - Peripancreatic fluid collection [Unknown]
  - Hypertension [Unknown]
  - Pyrexia [Unknown]
  - Leukocytosis [Unknown]
  - Ascites [Unknown]
  - Pneumonia [Unknown]
  - Pleural effusion [Unknown]
  - Ileus [Unknown]
  - Hypercholesterolaemia [Unknown]
  - Aortic calcification [Unknown]
  - Death [Fatal]
  - Chronic kidney disease [Not Recovered/Not Resolved]
  - Diverticulum intestinal [Unknown]
  - Coronary arterial stent insertion [Unknown]
  - Dysphagia [Unknown]
  - Cystopexy [Unknown]
  - Haemorrhoids [Unknown]
  - Coronary artery disease [Unknown]
  - Atelectasis [Unknown]
  - Colitis [Unknown]
  - Adenocarcinoma pancreas [Unknown]
  - Pulmonary mass [Unknown]
  - Spinal osteoarthritis [Unknown]
  - Gastritis erosive [Unknown]
  - Explorative laparotomy [Unknown]
  - Adrenal mass [Unknown]
  - Cholelithiasis [Unknown]
  - Drug ineffective [Unknown]

NARRATIVE: CASE EVENT DATE: 20120423
